FAERS Safety Report 6381788-X (Version None)
Quarter: 2009Q3

REPORT INFORMATION
  Report Type: 
  Country: None (occurrence: None)
  Receive Date: 20090930
  Receipt Date: 20090922
  Transmission Date: 20100115
  Serious: Yes (Other)
  Sender: FDA-Public Use
  Company Number: MX-ELI_LILLY_AND_COMPANY-MX200909002457

PATIENT
  Age: 52 Year
  Sex: Male

DRUGS (3)
  1. BYETTA [Suspect]
     Indication: TYPE 2 DIABETES MELLITUS
     Dosage: 10 UG, UNKNOWN
     Route: 065
  2. BYETTA [Suspect]
     Dosage: 10 UG, 2/D
     Route: 065
     Dates: end: 20090901
  3. METFORMIN HCL [Concomitant]
     Indication: DIABETES MELLITUS
     Dosage: 850 MG, 3/D
     Route: 048

REACTIONS (1)
  - PANCREATITIS [None]
